FAERS Safety Report 17425150 (Version 2)
Quarter: 2020Q1

REPORT INFORMATION
  Report Type: Spontaneous
  Country: FR (occurrence: FR)
  Receive Date: 20200218
  Receipt Date: 20200226
  Transmission Date: 20200409
  Serious: Yes (Hospitalization, Other)
  Sender: FDA-Public Use
  Company Number: FR-ADVANZ PHARMA-202002000774

PATIENT

DRUGS (3)
  1. LEVOTHYROX [Concomitant]
     Active Substance: LEVOTHYROXINE
     Indication: THYROID DISORDER
     Dosage: UNK
  2. HYDROXYCHLOROQUINE SULFATE (AUTHORIZED GENERIC),PLAQUENIL [Suspect]
     Active Substance: HYDROXYCHLOROQUINE SULFATE
     Dosage: 2 DOSAGE FORM, QD
     Route: 065
     Dates: start: 2015, end: 20150903
  3. HYDROXYCHLOROQUINE SULFATE (AUTHORIZED GENERIC),PLAQUENIL [Suspect]
     Active Substance: HYDROXYCHLOROQUINE SULFATE
     Indication: ARTHRALGIA
     Dosage: 2 DOSAGE FORM, QD
     Route: 065
     Dates: start: 20150724, end: 20150820

REACTIONS (12)
  - Dyspnoea [Unknown]
  - Pyrexia [Unknown]
  - Pustular psoriasis [Unknown]
  - Epidermal necrosis [Unknown]
  - Skin exfoliation [Unknown]
  - Rash pustular [Unknown]
  - Toxic skin eruption [Unknown]
  - Cholestasis [Unknown]
  - Acute generalised exanthematous pustulosis [Unknown]
  - Cell death [Unknown]
  - Rash [Unknown]
  - Eosinophil count increased [Unknown]

NARRATIVE: CASE EVENT DATE: 20150820
